FAERS Safety Report 20983001 (Version 1)
Quarter: 2022Q2

REPORT INFORMATION
  Report Type: Spontaneous
  Country: CN (occurrence: CN)
  Receive Date: 20220620
  Receipt Date: 20220620
  Transmission Date: 20220720
  Serious: Yes (Other)
  Sender: FDA-Public Use
  Company Number: CN-PFIZER INC-PV202200000319

PATIENT
  Sex: Male
  Weight: 80 kg

DRUGS (2)
  1. AVIBACTAM SODIUM\CEFTAZIDIME [Suspect]
     Active Substance: AVIBACTAM SODIUM\CEFTAZIDIME
     Indication: Pneumonia
     Dosage: 1.25 G, TID
     Route: 041
     Dates: start: 20220214, end: 20220218
  2. AVIBACTAM SODIUM\CEFTAZIDIME [Suspect]
     Active Substance: AVIBACTAM SODIUM\CEFTAZIDIME
     Dosage: 2.5 G, TID
     Route: 041
     Dates: start: 20220212, end: 20220213

REACTIONS (5)
  - Platelet count decreased [Recovered/Resolved]
  - White blood cell count increased [Unknown]
  - Haemoglobin decreased [Unknown]
  - Neutrophil percentage increased [Unknown]
  - C-reactive protein increased [Unknown]

NARRATIVE: CASE EVENT DATE: 20220214
